FAERS Safety Report 9843098 (Version 1)
Quarter: 2014Q1

REPORT INFORMATION
  Report Type: Spontaneous
  Country: PH (occurrence: PH)
  Receive Date: 20140124
  Receipt Date: 20140124
  Transmission Date: 20141002
  Serious: Yes (Hospitalization, Other)
  Sender: FDA-Public Use
  Company Number: PH-009507513-1401PHL009844

PATIENT
  Age: 56 Year
  Sex: Male

DRUGS (2)
  1. COZAAR [Suspect]
     Dosage: ONE TABLET, ONCE A DAY
     Route: 048
     Dates: start: 20121122, end: 201312
  2. AMLODIPINE [Suspect]
     Dosage: UNK

REACTIONS (1)
  - Cerebrovascular accident [Unknown]
